FAERS Safety Report 5067230-X (Version None)
Quarter: 2006Q3

REPORT INFORMATION
  Report Type: 
  Country: None (occurrence: None)
  Receive Date: 20060727
  Receipt Date: 20060717
  Transmission Date: 20061208
  Serious: Yes (Other)
  Sender: FDA-Public Use
  Company Number: 2006088884

PATIENT
  Age: 70 Year
  Sex: Male

DRUGS (7)
  1. LIPITOR [Suspect]
     Indication: DRUG USE FOR UNKNOWN INDICATION
     Dosage: ORAL
     Route: 048
     Dates: start: 20040101, end: 20050101
  2. CRESTOR [Suspect]
     Indication: DRUG USE FOR UNKNOWN INDICATION
  3. WARFARIN SODIUM [Concomitant]
  4. NORVASC [Concomitant]
  5. AVAPRO [Concomitant]
  6. LOSEC (OMEPRAZOLE) [Concomitant]
  7. MUTIVITAMINS (MULTIVITAMINS) [Concomitant]

REACTIONS (5)
  - BACK DISORDER [None]
  - MUSCLE RIGIDITY [None]
  - MUSCULAR WEAKNESS [None]
  - MUSCULOSKELETAL STIFFNESS [None]
  - TREATMENT NONCOMPLIANCE [None]
